FAERS Safety Report 9190988 (Version 1)
Quarter: 2013Q1

REPORT INFORMATION
  Report Type: Spontaneous
  Country: US (occurrence: US)
  Receive Date: 20130326
  Receipt Date: 20130326
  Transmission Date: 20140127
  Serious: Yes (Hospitalization, Other)
  Sender: FDA-Public Use
  Company Number: US-BAYER-2013-035839

PATIENT
  Age: 22 Year
  Sex: Female

DRUGS (10)
  1. MOXIFLOXACIN ORAL [Suspect]
     Indication: MYCOBACTERIUM AVIUM COMPLEX INFECTION
  2. MOXIFLOXACIN ORAL [Suspect]
     Indication: MASTOIDITIS
  3. AZITHROMYCIN [Suspect]
     Indication: MYCOBACTERIUM AVIUM COMPLEX INFECTION
  4. DAPSONE [Suspect]
     Indication: MYCOBACTERIUM AVIUM COMPLEX INFECTION
  5. DAPSONE [Suspect]
     Indication: MASTOIDITIS
  6. ETHAMBUTOL [Suspect]
  7. RIFABUTIN [Suspect]
  8. FLUCONAZOLE [Concomitant]
     Indication: OPPORTUNISTIC INFECTION PROPHYLAXIS
  9. ACYCLOVIR [ACICLOVIR] [Concomitant]
     Indication: OPPORTUNISTIC INFECTION PROPHYLAXIS
  10. SULFAMETHOXAZOLE W/TRIMETHOPRIM [Concomitant]
     Indication: ANTIFUNGAL PROPHYLAXIS

REACTIONS (3)
  - Drug ineffective [Not Recovered/Not Resolved]
  - Immune reconstitution inflammatory syndrome [Not Recovered/Not Resolved]
  - Posterior reversible encephalopathy syndrome [Not Recovered/Not Resolved]
